FAERS Safety Report 9166932 (Version 1)
Quarter: 2013Q1

REPORT INFORMATION
  Report Type: Spontaneous
  Country: ES (occurrence: ES)
  Receive Date: 20130317
  Receipt Date: 20130317
  Transmission Date: 20140127
  Serious: Yes (Hospitalization)
  Sender: FDA-Public Use
  Company Number: ES-ELI_LILLY_AND_COMPANY-ES201303004534

PATIENT
  Age: 84 Year
  Sex: Female

DRUGS (6)
  1. FORSTEO [Suspect]
     Indication: OSTEOPOROSIS
     Dosage: 20 UG, QD
     Route: 058
     Dates: start: 200912, end: 20100209
  2. MIACALCIC [Concomitant]
     Indication: OSTEOPOROSIS
     Dosage: UNK
     Route: 055
  3. METAMIZOLE SODIUM [Concomitant]
     Dosage: UNK
  4. ADIRO [Concomitant]
     Dosage: UNK
  5. FOSITEN [Concomitant]
     Dosage: UNK
  6. NITRODERM [Concomitant]
     Dosage: UNK

REACTIONS (1)
  - Arrhythmia [Recovered/Resolved]
